FAERS Safety Report 7728510-X (Version None)
Quarter: 2011Q3

REPORT INFORMATION
  Report Type: 
  Country: None (occurrence: None)
  Receive Date: 20110906
  Receipt Date: 20110826
  Transmission Date: 20111222
  Serious: Yes (Other)
  Sender: FDA-Public Use
  Company Number: CN-AMGEN-CHNSP2011044860

PATIENT
  Age: 43 Year
  Sex: Male

DRUGS (2)
  1. ENBREL [Suspect]
     Indication: ANKYLOSING SPONDYLITIS
     Dosage: 25 MG TWICE PER WEEK
     Dates: start: 20070118, end: 20070101
  2. ENBREL [Suspect]
     Dosage: 12.5 MG ONCE PER WEEK
     Dates: start: 20070101

REACTIONS (1)
  - RENAL CELL CARCINOMA [None]
